FAERS Safety Report 18647157 (Version 1)
Quarter: 2020Q4

REPORT INFORMATION
  Report Type: Spontaneous
  Country: US (occurrence: US)
  Receive Date: 20201222
  Receipt Date: 20201222
  Transmission Date: 20210114
  Serious: Yes (Other)
  Sender: FDA-Public Use
  Company Number: US-AUROBINDO-AUR-APL-2020-063084

PATIENT
  Age: 37 Year
  Sex: Female

DRUGS (1)
  1. LOPERAMIDE [Suspect]
     Active Substance: LOPERAMIDE
     Indication: DRUG WITHDRAWAL SYNDROME
     Dosage: 400 MILLIGRAM, DAILY (200 PILLS)
     Route: 065
     Dates: start: 2008

REACTIONS (4)
  - Drug use disorder [Recovered/Resolved]
  - Drug abuse [Recovered/Resolved]
  - Euphoric mood [Recovered/Resolved]
  - Overdose [Recovered/Resolved]

NARRATIVE: CASE EVENT DATE: 2018
